FAERS Safety Report 16838746 (Version 1)
Quarter: 2019Q4

REPORT INFORMATION
  Report Type: Spontaneous
  Country: US (occurrence: US)
  Receive Date: 20190920
  Receipt Date: 20190920
  Transmission Date: 20200122
  Serious: Yes (Life-Threatening, Hospitalization)
  Sender: FDA-Public Use
  Company Number: None

PATIENT
  Age: 58 Year
  Sex: Female
  Weight: 62.1 kg

DRUGS (9)
  1. SINGULAIR [Concomitant]
     Active Substance: MONTELUKAST SODIUM
  2. FLUTICASONE. [Concomitant]
     Active Substance: FLUTICASONE
  3. NITROFURANTOIN MONOHYDRATE/MACROCRYSTALS (MONOHYDRATE/MACROCRYSTALS) [Suspect]
     Active Substance: NITROFURANTOIN\NITROFURANTOIN MONOHYDRATE
     Indication: ESCHERICHIA URINARY TRACT INFECTION
     Dosage: ?          QUANTITY:1 CAPSULE(S);?
     Route: 048
     Dates: start: 20190814, end: 20190821
  4. ALEGRA 180MG [Concomitant]
  5. MAGNESIUM OXIDE 500MG [Concomitant]
  6. HCTZ  6.25MG [Concomitant]
  7. MAGNESIUM OIDE 500MG [Concomitant]
  8. IBUPROFEN 200-400MG [Concomitant]
  9. DOXAZOSIN [Concomitant]
     Active Substance: DOXAZOSIN MESYLATE

REACTIONS (11)
  - Dyspnoea [None]
  - Oxygen saturation decreased [None]
  - Nausea [None]
  - Rales [None]
  - Abdominal pain upper [None]
  - Blood lactic acid increased [None]
  - Hypoxia [None]
  - Pulmonary oedema [None]
  - Pneumonia [None]
  - Wheezing [None]
  - Hypotension [None]

NARRATIVE: CASE EVENT DATE: 20190903
